FAERS Safety Report 7811272-5 (Version None)
Quarter: 2011Q4

REPORT INFORMATION
  Report Type: 
  Country: None (occurrence: None)
  Receive Date: 20111013
  Receipt Date: 20111004
  Transmission Date: 20120403
  Serious: Yes (Hospitalization)
  Sender: FDA-Public Use
  Company Number: JP-SANOFI-AVENTIS-2011SA064986

PATIENT
  Age: 63 Year
  Sex: Male
  Weight: 44 kg

DRUGS (9)
  1. OXALIPLATIN [Suspect]
     Route: 041
     Dates: start: 20110901, end: 20110901
  2. OXALIPLATIN [Suspect]
     Indication: GASTRIC CANCER
     Route: 041
     Dates: start: 20110721, end: 20110811
  3. AMINOHIPPURATE SODIUM/GIMERACIL/TEGAFUR [Suspect]
     Route: 048
     Dates: start: 20110901, end: 20110915
  4. DEXAMETHASONE SODIUM PHOSPHATE [Concomitant]
     Indication: PROPHYLAXIS OF NAUSEA AND VOMITING
     Dosage: ROUTE: IV
     Route: 042
     Dates: start: 20110721, end: 20110901
  5. DEXAMETHASONE [Concomitant]
     Indication: PROPHYLAXIS OF NAUSEA AND VOMITING
     Dosage: ROUTE: IV
     Route: 042
     Dates: start: 20110722, end: 20110904
  6. ALOXI [Concomitant]
     Indication: PROPHYLAXIS OF NAUSEA AND VOMITING
     Dosage: ROUTE: IV
     Route: 042
     Dates: start: 20110721, end: 20110901
  7. SOLUTIONS FOR PARENTERAL NUTRITION [Concomitant]
     Indication: DECREASED APPETITE
     Dosage: 200-250 ML
     Route: 048
     Dates: end: 20110923
  8. MAGNESIUM SULFATE [Concomitant]
     Indication: CONSTIPATION
     Route: 048
     Dates: start: 20110825, end: 20110923
  9. AMINOHIPPURATE SODIUM/GIMERACIL/TEGAFUR [Suspect]
     Indication: GASTRIC CANCER
     Route: 048
     Dates: start: 20110721, end: 20110825

REACTIONS (1)
  - TUMOUR PERFORATION [None]
